FAERS Safety Report 4703620-X (Version None)
Quarter: 2005Q2

REPORT INFORMATION
  Report Type: 
  Country: None (occurrence: None)
  Receive Date: 20050628
  Receipt Date: 20050616
  Transmission Date: 20051028
  Serious: Yes (Hospitalization)
  Sender: FDA-Public Use
  Company Number: US015467

PATIENT
  Age: 49 Year
  Sex: Female
  Weight: 99.3377 kg

DRUGS (13)
  1. PROVIGIL [Suspect]
     Indication: ATTENTION DEFICIT/HYPERACTIVITY DISORDER
     Dosage: 15 MG QD ORAL
     Route: 048
     Dates: start: 20040101, end: 20040201
  2. PROVIGIL [Suspect]
     Indication: RESTLESS LEGS SYNDROME
     Dosage: 15 MG QD ORAL
     Route: 048
     Dates: start: 20040101, end: 20040201
  3. PROVIGIL [Suspect]
     Indication: ATTENTION DEFICIT/HYPERACTIVITY DISORDER
     Dosage: 50 MG QD ORAL
     Route: 048
     Dates: start: 20040201, end: 20050613
  4. PROVIGIL [Suspect]
     Indication: RESTLESS LEGS SYNDROME
     Dosage: 50 MG QD ORAL
     Route: 048
     Dates: start: 20040201, end: 20050613
  5. PLAQUENIL [Concomitant]
  6. ALEVE [Concomitant]
  7. NEXIUM [Concomitant]
  8. LEXAPRO [Concomitant]
  9. IMDUR [Concomitant]
  10. ZOCOR [Concomitant]
  11. DIOVAN HCT [Concomitant]
  12. ASPIRIN [Concomitant]
  13. VITAMIN SUPPLEMENTS [Concomitant]

REACTIONS (3)
  - ARTERIOSPASM CORONARY [None]
  - CORONARY ARTERY STENOSIS [None]
  - DRUG INEFFECTIVE [None]
